FAERS Safety Report 6634257-3 (Version None)
Quarter: 2010Q1

REPORT INFORMATION
  Report Type: 
  Country: None (occurrence: None)
  Receive Date: 20100315
  Receipt Date: 20100304
  Transmission Date: 20100710
  Serious: Yes (Hospitalization)
  Sender: FDA-Public Use
  Company Number: PHHY2010MX13314

PATIENT
  Age: 55 Year
  Sex: Male

DRUGS (4)
  1. CO-DIOVAN [Suspect]
     Indication: HYPERTENSION
     Dosage: 1 TABLET (160/25 MG) PER DAY
     Route: 048
  2. CEFUROXIME [Concomitant]
  3. RANISEN [Concomitant]
  4. TYLEX (PARACETAMOL) [Concomitant]

REACTIONS (2)
  - PROSTATIC OPERATION [None]
  - URINARY TRACT OBSTRUCTION [None]
